FAERS Safety Report 16078030 (Version 1)
Quarter: 2019Q1

REPORT INFORMATION
  Report Type: Spontaneous
  Country: US (occurrence: US)
  Receive Date: 20190315
  Receipt Date: 20190315
  Transmission Date: 20190418
  Serious: Yes (Life-Threatening, Hospitalization)
  Sender: FDA-Public Use
  Company Number: US-MYLANLABS-2019M1023304

PATIENT
  Age: 73 Year
  Sex: Female

DRUGS (8)
  1. DEXAMETHASONE. [Suspect]
     Active Substance: DEXAMETHASONE
     Indication: PLASMA CELL MYELOMA
     Dosage: RECEIVED TWO CYCLES FOLLOWED BY FOUR CYCLES
     Route: 065
  2. MELPHALAN. [Suspect]
     Active Substance: MELPHALAN
     Indication: PLASMA CELL MYELOMA
     Dosage: CONDITIONING REGIMEN
     Route: 065
  3. ECULIZUMAB [Suspect]
     Active Substance: ECULIZUMAB
     Indication: PRODUCT USED FOR UNKNOWN INDICATION
     Dosage: UNK
     Route: 065
  4. BORTEZOMIB. [Suspect]
     Active Substance: BORTEZOMIB
     Indication: PLASMA CELL MYELOMA
     Dosage: RECEIVED TWO CYCLES FOLLOWED BY FOUR CYCLES
     Route: 065
  5. LENALIDOMIDE [Suspect]
     Active Substance: LENALIDOMIDE
     Indication: PLASMA CELL MYELOMA
     Dosage: FOUR CYCLES
     Route: 065
  6. BORTEZOMIB. [Suspect]
     Active Substance: BORTEZOMIB
     Dosage: MAINTENANCE THERAPY
     Route: 065
  7. LENALIDOMIDE [Suspect]
     Active Substance: LENALIDOMIDE
     Dosage: LOW DOSE
     Route: 065
  8. CYCLOPHOSPHAMIDE. [Suspect]
     Active Substance: CYCLOPHOSPHAMIDE
     Indication: PLASMA CELL MYELOMA
     Dosage: TWO CYCLES
     Route: 065

REACTIONS (8)
  - Influenza [Recovering/Resolving]
  - Streptococcal infection [Recovering/Resolving]
  - Encephalopathy [Recovering/Resolving]
  - Septic shock [Recovering/Resolving]
  - Thrombotic microangiopathy [Recovering/Resolving]
  - Renal failure [Recovering/Resolving]
  - Renal tubular injury [Recovering/Resolving]
  - Respiratory failure [Recovering/Resolving]
